FAERS Safety Report 16330332 (Version 1)
Quarter: 2019Q2

REPORT INFORMATION
  Report Type: Spontaneous
  Country: FR (occurrence: FR)
  Receive Date: 20190520
  Receipt Date: 20190520
  Transmission Date: 20190711
  Serious: Yes (Hospitalization)
  Sender: FDA-Public Use
  Company Number: FR-ACCORD-128076

PATIENT
  Age: 73 Year
  Sex: Male
  Weight: 85 kg

DRUGS (6)
  1. RYDAPT [Suspect]
     Active Substance: MIDOSTAURIN
     Indication: ACUTE MYELOID LEUKAEMIA
     Dosage: DATE OF LAST ADMINISTRATION 24-FEB-2019
     Route: 048
     Dates: start: 20190211
  2. MITOXANTRONE TEVA [Suspect]
     Active Substance: MITOXANTRONE HYDROCHLORIDE
     Indication: ACUTE MYELOID LEUKAEMIA
     Dosage: DATE OF LAST ADMINISTRATION 21-OCT-2018
     Route: 042
     Dates: start: 20181020
  3. METHOTREXATE. [Suspect]
     Active Substance: METHOTREXATE
     Indication: ACUTE MYELOID LEUKAEMIA
     Dosage: DATE OF LAST ADMINISTRATION 17-DEC-2018
     Route: 037
     Dates: start: 20181129
  4. HYDROCORTANCYL [Suspect]
     Active Substance: PREDNISONE
     Indication: ACUTE MYELOID LEUKAEMIA
     Dosage: DATE OF LAST ADMINISTRATION 17-DEC-2018
     Route: 037
     Dates: start: 20181129
  5. CYTARABINE SANDOZ [Suspect]
     Active Substance: CYTARABINE
     Indication: ACUTE MYELOID LEUKAEMIA
     Dosage: DATE OF LAST ADMINISTRATION 11-FEB-2019
     Dates: start: 20181016
  6. ZAVEDOS [Suspect]
     Active Substance: IDARUBICIN
     Indication: ACUTE MYELOID LEUKAEMIA
     Dosage: DATE OF LAST ADMINISTRATION 30-NOV-2018
     Route: 042
     Dates: start: 20181130

REACTIONS (1)
  - Acute motor-sensory axonal neuropathy [Recovering/Resolving]

NARRATIVE: CASE EVENT DATE: 201902
